FAERS Safety Report 12917466 (Version 1)
Quarter: 2016Q4

REPORT INFORMATION
  Report Type: Report from Study
  Country: None (occurrence: JP)
  Receive Date: 20161107
  Receipt Date: 20161107
  Transmission Date: 20170207
  Serious: Yes (Other)
  Sender: FDA-Public Use
  Company Number: JP-ABBVIE-16P-087-1773678-00

PATIENT
  Age: 59 Year
  Sex: Female
  Weight: 54.1 kg

DRUGS (6)
  1. STRONGER NEO-MINOPHAGEN C,-P [Concomitant]
     Indication: HEPATITIS C
     Route: 042
     Dates: start: 20130330, end: 20140702
  2. URSODEOXYCHOLIC ACID [Concomitant]
     Active Substance: URSODIOL
     Indication: HEPATITIS C
     Route: 048
     Dates: start: 20121017, end: 20140701
  3. AMLODIPINE BESILATE [Concomitant]
     Active Substance: AMLODIPINE BESYLATE
     Indication: HYPERTENSION
     Route: 048
     Dates: start: 20131122
  4. LEVOFLOXACIN HYDRATE (NON-ABBVIE) [Concomitant]
     Indication: CYSTITIS
     Route: 048
     Dates: start: 20140322, end: 20140328
  5. CABAGIN [Concomitant]
     Active Substance: METHIONINE
     Indication: EPIGASTRIC DISCOMFORT
     Route: 048
     Dates: start: 20140423, end: 20140423
  6. VIEKIRAX [Suspect]
     Active Substance: OMBITASVIR\PARITAPREVIR\RITONAVIR
     Indication: CHRONIC HEPATITIS C
     Route: 048
     Dates: start: 20140312, end: 20140602

REACTIONS (1)
  - Helicobacter infection [Recovered/Resolved]

NARRATIVE: CASE EVENT DATE: 20150522
